FAERS Safety Report 8427007-1 (Version None)
Quarter: 2012Q2

REPORT INFORMATION
  Report Type: 
  Country: None (occurrence: None)
  Receive Date: 20120611
  Receipt Date: 20120607
  Transmission Date: 20120825
  Serious: Yes (Life-Threatening)
  Sender: FDA-Public Use
  Company Number: US-ABBOTT-12P-163-0944098-00

PATIENT
  Sex: Female

DRUGS (2)
  1. LUPRON DEPOT [Suspect]
     Indication: ENDOMETRIOSIS
     Dates: start: 20120516
  2. PRENATAL PILLS [Concomitant]
     Indication: PRODUCT USED FOR UNKNOWN INDICATION

REACTIONS (7)
  - BLOOD PRESSURE DECREASED [None]
  - HYPERSENSITIVITY [None]
  - VOMITING [None]
  - ASTHENIA [None]
  - DYSPNOEA [None]
  - URTICARIA [None]
  - RASH MACULAR [None]
